FAERS Safety Report 10548840 (Version 2)
Quarter: 2014Q4

REPORT INFORMATION
  Report Type: Spontaneous
  Country: US (occurrence: US)
  Receive Date: 20141028
  Receipt Date: 20141118
  Transmission Date: 20150529
  Serious: Yes (Disabling)
  Sender: FDA-Public Use
  Company Number: US-US-EMD SERONO, INC.-7330121

PATIENT
  Sex: Female

DRUGS (1)
  1. REBIF [Suspect]
     Active Substance: INTERFERON BETA-1A
     Indication: PROGRESSIVE MULTIPLE SCLEROSIS

REACTIONS (3)
  - Drug ineffective [Unknown]
  - Fatigue [Unknown]
  - Multiple sclerosis [Not Recovered/Not Resolved]
